FAERS Safety Report 9655500 (Version 13)
Quarter: 2014Q4

REPORT INFORMATION
  Report Type: Report from Study
  Country: NL (occurrence: NL)
  Receive Date: 20131029
  Receipt Date: 20141215
  Transmission Date: 20150529
  Serious: Yes (Hospitalization)
  Sender: FDA-Public Use
  Company Number: NL-ROCHE-1288108

PATIENT
  Age: 4 Year
  Sex: Male
  Weight: 18.3 kg

DRUGS (24)
  1. DACTINOMYCIN [Suspect]
     Active Substance: DACTINOMYCIN
     Indication: NEOPLASM MALIGNANT
     Dosage: LAST DOSE PRIOR TO SAE: 06/11/2013
     Route: 042
     Dates: start: 20130902
  2. DOMPERIDON [Concomitant]
     Active Substance: DOMPERIDONE
     Route: 065
     Dates: start: 20130903
  3. COLISTINE [Concomitant]
     Active Substance: COLISTIN
     Route: 065
     Dates: start: 20131002
  4. DEXAMETASON [Concomitant]
     Active Substance: DEXAMETHASONE
     Route: 065
     Dates: start: 20131106, end: 20131108
  5. NEUPOGEN [Concomitant]
     Active Substance: FILGRASTIM
     Route: 065
     Dates: start: 20131115
  6. BEVACIZUMAB [Suspect]
     Active Substance: BEVACIZUMAB
     Indication: NEOPLASM MALIGNANT
     Dosage: LAST DOSE PRIOR TO SAE: 25/SEP/2013
     Route: 042
     Dates: start: 20130902, end: 20131016
  7. VINCRISTINE [Suspect]
     Active Substance: VINCRISTINE
     Indication: NEOPLASM MALIGNANT
     Dosage: LAST DOSE PRIOR TO SAE: 09/OCT/2013
     Route: 042
     Dates: start: 20130902, end: 20131016
  8. IFOSFAMIDE. [Suspect]
     Active Substance: IFOSFAMIDE
     Indication: NEOPLASM MALIGNANT
     Dosage: LAST DOSE PRIOR TO SAE: 07/NOV/2013
     Route: 042
     Dates: start: 20130902
  9. COTRIMOXAZOLE [Concomitant]
     Active Substance: SULFAMETHOXAZOLE\TRIMETHOPRIM
     Route: 065
     Dates: start: 20131002
  10. DOXORUBICIN [Suspect]
     Active Substance: DOXORUBICIN
     Indication: NEOPLASM MALIGNANT
     Dosage: LAST DOSE PRIOR TO SAE: 26/SEP/2013
     Route: 042
     Dates: start: 20130902
  11. EMLA [Concomitant]
     Active Substance: LIDOCAINE\PRILOCAINE
     Route: 065
     Dates: start: 20130903
  12. DIAZEPAM. [Concomitant]
     Active Substance: DIAZEPAM
     Route: 065
     Dates: start: 20131018, end: 20131018
  13. NEUPOGEN [Concomitant]
     Active Substance: FILGRASTIM
     Route: 065
     Dates: start: 20131023, end: 20131031
  14. VANCOMYCIN [Concomitant]
     Active Substance: VANCOMYCIN
     Route: 065
     Dates: start: 20131028, end: 20131031
  15. FORLAX [Concomitant]
     Active Substance: POLYETHYLENE GLYCOL 4000
     Route: 065
     Dates: start: 20130902
  16. ZOFRAN [Concomitant]
     Active Substance: ONDANSETRON HYDROCHLORIDE
     Route: 065
     Dates: start: 20130909
  17. DEXAMETASON [Concomitant]
     Active Substance: DEXAMETHASONE
     Route: 065
     Dates: start: 20131016, end: 20131019
  18. NEUPOGEN [Concomitant]
     Active Substance: FILGRASTIM
     Route: 065
     Dates: start: 20131109
  19. GENTAMICIN. [Concomitant]
     Active Substance: GENTAMICIN
     Route: 065
     Dates: start: 20131028, end: 20131031
  20. AMOXICILLIN. [Concomitant]
     Active Substance: AMOXICILLIN
     Route: 065
     Dates: start: 20131029, end: 20131029
  21. STESOLID [Concomitant]
     Active Substance: DIAZEPAM
     Route: 065
     Dates: start: 20131008, end: 20131009
  22. NYSTATINE [Concomitant]
     Dosage: DAILY DOSE : 1.8 X 10^6 IE
     Route: 065
     Dates: start: 20130902
  23. PARACETAMOL [Concomitant]
     Active Substance: ACETAMINOPHEN
     Route: 065
     Dates: start: 20131016, end: 20131111
  24. CEFUROXIM [Concomitant]
     Active Substance: CEFUROXIME
     Route: 065
     Dates: start: 20131025, end: 20131025

REACTIONS (3)
  - Vocal cord paresis [Recovered/Resolved with Sequelae]
  - Subclavian vein thrombosis [Not Recovered/Not Resolved]
  - Stomatitis [Recovered/Resolved]

NARRATIVE: CASE EVENT DATE: 20131002
